FAERS Safety Report 11192435 (Version 1)
Quarter: 2015Q2

REPORT INFORMATION
  Report Type: Spontaneous
  Country: US (occurrence: US)
  Receive Date: 20150616
  Receipt Date: 20150616
  Transmission Date: 20150821
  Serious: Yes (Other)
  Sender: FDA-Public Use
  Company Number: US-PFIZER INC-2015199681

PATIENT
  Age: 49 Year
  Sex: Female

DRUGS (2)
  1. SYNTHROID [Suspect]
     Active Substance: LEVOTHYROXINE SODIUM
     Dosage: UNK
  2. PRISTIQ EXTENDED RELEASE [Suspect]
     Active Substance: DESVENLAFAXINE SUCCINATE
     Dosage: UNK

REACTIONS (11)
  - Drug tolerance [Unknown]
  - Stress [Unknown]
  - Sinusitis [Unknown]
  - Malaise [Unknown]
  - Feeling abnormal [Unknown]
  - Hypersensitivity [Unknown]
  - Self-injurious ideation [Unknown]
  - Immune system disorder [Unknown]
  - Influenza [Unknown]
  - Depression [Unknown]
  - Bronchitis [Unknown]
